FAERS Safety Report 8793365 (Version 2)
Quarter: 2013Q4

REPORT INFORMATION
  Report Type: Spontaneous
  Country: US (occurrence: US)
  Receive Date: 20120918
  Receipt Date: 20131101
  Transmission Date: 20140711
  Serious: No
  Sender: FDA-Public Use
  Company Number: US-009507513-1209USA002757

PATIENT
  Sex: Male

DRUGS (9)
  1. VICTRELIS [Suspect]
     Dosage: 800 MG, Q8H
     Route: 048
  2. REBETOL [Suspect]
     Route: 048
  3. PEGASYS [Concomitant]
  4. HYDROCODONE [Concomitant]
  5. MORPHINE [Concomitant]
  6. PRILOSEC [Concomitant]
  7. VITAMIN D (UNSPECIFIED) [Concomitant]
  8. POTASSIUM (UNSPECIFIED) [Concomitant]
  9. ASCORBIC ACID [Suspect]

REACTIONS (3)
  - Malaise [Recovering/Resolving]
  - Pyrexia [Recovering/Resolving]
  - Depression [Recovering/Resolving]
